FAERS Safety Report 7581739-6 (Version None)
Quarter: 2011Q2

REPORT INFORMATION
  Report Type: 
  Country: None (occurrence: None)
  Receive Date: 20110629
  Receipt Date: 20110614
  Transmission Date: 20111010
  Serious: Yes (Hospitalization)
  Sender: FDA-Public Use
  Company Number: KR-BAYER-2011-054102

PATIENT
  Age: 60 Year
  Sex: Male
  Weight: 62.5 kg

DRUGS (3)
  1. ACETYLSALICYLIC ACID SRT [Suspect]
     Indication: ACUTE CORONARY SYNDROME
     Route: 048
     Dates: end: 20110602
  2. RIVAROXABAN [Interacting]
     Indication: ACUTE CORONARY SYNDROME
     Dosage: TABLET
     Route: 048
     Dates: start: 20090522, end: 20110601
  3. CLOPIDOGREL [Interacting]
     Indication: ACUTE CORONARY SYNDROME
     Route: 048
     Dates: end: 20110602

REACTIONS (1)
  - GASTRIC HAEMORRHAGE [None]
